FAERS Safety Report 19271145 (Version 1)
Quarter: 2021Q2

REPORT INFORMATION
  Report Type: Report from Study
  Country: None (occurrence: CN)
  Receive Date: 20210518
  Receipt Date: 20210518
  Transmission Date: 20210717
  Serious: Yes (Hospitalization)
  Sender: FDA-Public Use
  Company Number: CN-ABBVIE-21P-035-3852310-00

PATIENT
  Age: 65 Year
  Sex: Male
  Weight: 70 kg

DRUGS (4)
  1. MESALAZINE ENTERIC COATED TABLETS [Concomitant]
     Route: 048
     Dates: start: 20200709, end: 20200831
  2. MESALAZINE ENTERIC COATED TABLETS [Concomitant]
     Indication: COLITIS ULCERATIVE
     Route: 048
     Dates: start: 201906, end: 20200708
  3. UPADACITINIB [Suspect]
     Active Substance: UPADACITINIB
     Indication: COLITIS ULCERATIVE
     Route: 048
     Dates: start: 20201029, end: 20210407
  4. MESALAZINE ENTERIC COATED TABLETS [Concomitant]
     Route: 048
     Dates: start: 20200901

REACTIONS (1)
  - Pneumonia cryptococcal [Not Recovered/Not Resolved]

NARRATIVE: CASE EVENT DATE: 20210404
